FAERS Safety Report 8531247-0 (Version None)
Quarter: 2012Q3

REPORT INFORMATION
  Report Type: 
  Country: None (occurrence: None)
  Receive Date: 20120723
  Receipt Date: 20120706
  Transmission Date: 20120928
  Serious: No
  Sender: FDA-Public Use
  Company Number: US-B.I. PHARMACEUTICALS,INC./RIDGEFIELD-2012-BP-12398BP

PATIENT
  Sex: Male

DRUGS (6)
  1. ZANTAC 150 [Suspect]
     Indication: GASTROOESOPHAGEAL REFLUX DISEASE
  2. DIOVAN [Concomitant]
     Indication: HEART RATE IRREGULAR
     Dosage: 60 MG
     Route: 048
  3. ZANTAC 150 [Suspect]
     Indication: DYSPEPSIA
     Route: 048
     Dates: start: 20120401
  4. CILOSTAZOL [Concomitant]
     Indication: POOR PERIPHERAL CIRCULATION
     Dosage: 2 MG
     Route: 048
  5. NIFEDIPINE [Concomitant]
     Indication: HEART RATE IRREGULAR
     Dosage: 90 MG
     Route: 048
  6. INSULIN [Concomitant]
     Indication: DIABETES MELLITUS
     Dosage: 90 U
     Route: 058

REACTIONS (3)
  - COUGH [None]
  - HICCUPS [None]
  - MYALGIA [None]
